FAERS Safety Report 6957724-1 (Version None)
Quarter: 2010Q3

REPORT INFORMATION
  Report Type: 
  Country: None (occurrence: None)
  Receive Date: 20100831
  Receipt Date: 20100826
  Transmission Date: 20110219
  Serious: Yes (Other)
  Sender: FDA-Public Use
  Company Number: JP-B.I. PHARMACEUTICALS,INC./RIDGEFIELD-2010-BP-09695NB

PATIENT
  Age: 67 Year
  Sex: Male

DRUGS (4)
  1. SPIRIVA [Suspect]
     Indication: CHRONIC OBSTRUCTIVE PULMONARY DISEASE
     Dosage: 18 MCG
     Route: 055
     Dates: start: 20100305, end: 20100801
  2. CLARITHROMYCIN [Concomitant]
     Dosage: 200 MG
     Route: 048
  3. DASEN [Concomitant]
     Dosage: 10 MG
     Route: 048
  4. JUVELA N [Concomitant]
     Dosage: 100 MG
     Route: 048

REACTIONS (4)
  - DRY MOUTH [None]
  - DYSPHONIA [None]
  - OROPHARYNGEAL DISCOMFORT [None]
  - VOCAL CORD POLYP [None]
